FAERS Safety Report 9385083 (Version 2)
Quarter: 2013Q3

REPORT INFORMATION
  Report Type: Spontaneous
  Country: GB (occurrence: GB)
  Receive Date: 20130705
  Receipt Date: 20130712
  Transmission Date: 20140515
  Serious: Yes (Hospitalization, Other)
  Sender: FDA-Public Use
  Company Number: GB-NOVOPROD-381549

PATIENT
  Age: 46 Year
  Sex: Male

DRUGS (3)
  1. NOVORAPID [Suspect]
     Indication: TYPE 2 DIABETES MELLITUS
     Dosage: UNK
     Route: 065
     Dates: start: 201211, end: 20130621
  2. NOVORAPID [Suspect]
     Dosage: UNK (USED NOVORAPID OVER THE WEEKEND)
     Route: 065
  3. LANTUS [Suspect]
     Indication: TYPE 2 DIABETES MELLITUS
     Dosage: UNK
     Route: 058
     Dates: start: 201211, end: 20130621

REACTIONS (3)
  - Pancreatitis chronic [Unknown]
  - Hyperglycaemia [Not Recovered/Not Resolved]
  - Decreased appetite [Unknown]
